FAERS Safety Report 7197255-X (Version None)
Quarter: 2010Q4

REPORT INFORMATION
  Report Type: 
  Country: None (occurrence: None)
  Receive Date: 20101224
  Receipt Date: 20101221
  Transmission Date: 20110411
  Serious: Yes (Death, Hospitalization, Other)
  Sender: FDA-Public Use
  Company Number: US-ELI_LILLY_AND_COMPANY-US201012001302

PATIENT
  Sex: Female
  Weight: 74.195 kg

DRUGS (12)
  1. ALIMTA [Suspect]
     Indication: OVARIAN CANCER
     Dosage: 910 MG, UNK
     Route: 042
     Dates: start: 20100920
  2. VITAMIN B-12 [Concomitant]
     Dosage: 1000 MG, UNK
     Route: 030
     Dates: start: 20100914
  3. FOLIC ACID [Concomitant]
     Dosage: 1 MG, UNK
     Route: 048
     Dates: start: 20100914
  4. CORTICOSTEROIDS [Concomitant]
     Dates: start: 20100919
  5. TAMOXIFEN CITRATE [Concomitant]
  6. VITAMIN B6 [Concomitant]
  7. CALCIUM [Concomitant]
  8. IRON [Concomitant]
  9. DIUREX [Concomitant]
  10. K-DUR [Concomitant]
  11. M.V.I. [Concomitant]
  12. PRILOSEC [Concomitant]

REACTIONS (5)
  - ABDOMINAL PAIN [None]
  - GENERAL PHYSICAL HEALTH DETERIORATION [None]
  - HEPATOSPLENOMEGALY [None]
  - MALIGNANT NEOPLASM PROGRESSION [None]
  - OFF LABEL USE [None]
